FAERS Safety Report 6939425-9 (Version None)
Quarter: 2010Q3

REPORT INFORMATION
  Report Type: 
  Country: None (occurrence: None)
  Receive Date: 20100819
  Receipt Date: 20100805
  Transmission Date: 20110219
  Serious: Yes (Hospitalization)
  Sender: FDA-Public Use
  Company Number: IDA-00410

PATIENT
  Age: 54 Year
  Sex: Male

DRUGS (2)
  1. INDERAL [Suspect]
     Indication: HYPERTENSION
     Dosage: 20MG DAILY / 40MG DAILY
     Route: 048
     Dates: start: 20100607, end: 20100609
  2. INDERAL [Suspect]
     Indication: HYPERTENSION
     Dosage: 20MG DAILY / 40MG DAILY
     Route: 048
     Dates: start: 20100610, end: 20100612

REACTIONS (2)
  - ASTHENIA [None]
  - SYNCOPE [None]
